FAERS Safety Report 16990453 (Version 1)
Quarter: 2019Q4

REPORT INFORMATION
  Report Type: Spontaneous
  Country: US (occurrence: US)
  Receive Date: 20191103
  Receipt Date: 20191103
  Transmission Date: 20200122
  Serious: Yes (Other)
  Sender: FDA-Public Use
  Company Number: None

PATIENT
  Age: 52 Year
  Sex: Female
  Weight: 86.4 kg

DRUGS (1)
  1. EMGALITY [Suspect]
     Active Substance: GALCANEZUMAB-GNLM
     Indication: MIGRAINE
     Dosage: ?          OTHER FREQUENCY:MONTHLY INJECTION;?
     Route: 030
     Dates: start: 20190531, end: 20190930

REACTIONS (5)
  - Anxiety [None]
  - Palpitations [None]
  - Constipation [None]
  - Photosensitivity reaction [None]
  - Neuralgia [None]

NARRATIVE: CASE EVENT DATE: 20190701
